FAERS Safety Report 18367118 (Version 1)
Quarter: 2020Q4

REPORT INFORMATION
  Report Type: Spontaneous
  Country: FR (occurrence: FR)
  Receive Date: 20201009
  Receipt Date: 20201009
  Transmission Date: 20210114
  Serious: Yes (Other)
  Sender: FDA-Public Use
  Company Number: FR-MYLANLABS-2020M1084928

PATIENT
  Age: 39 Year
  Sex: Male

DRUGS (4)
  1. REMIFENTANIL [Suspect]
     Active Substance: REMIFENTANIL
     Indication: GENERAL ANAESTHESIA
     Dosage: UNK
     Route: 042
     Dates: start: 20200618, end: 20200618
  2. PROPOFOL. [Suspect]
     Active Substance: PROPOFOL
     Indication: GENERAL ANAESTHESIA
     Dosage: UNK
     Route: 042
     Dates: start: 20200618, end: 20200618
  3. CEFAZOLIN [Suspect]
     Active Substance: CEFAZOLIN
     Indication: GENERAL ANAESTHESIA
     Dosage: UNK
     Route: 042
     Dates: start: 20200618, end: 20200618
  4. KETAMINE [Suspect]
     Active Substance: KETAMINE
     Indication: GENERAL ANAESTHESIA
     Dosage: UNK
     Route: 042
     Dates: start: 20200618, end: 20200618

REACTIONS (1)
  - Rash [Recovered/Resolved]

NARRATIVE: CASE EVENT DATE: 20200618
